FAERS Safety Report 14032248 (Version 3)
Quarter: 2018Q1

REPORT INFORMATION
  Report Type: Spontaneous
  Country: IT (occurrence: IT)
  Receive Date: 20171002
  Receipt Date: 20180125
  Transmission Date: 20180508
  Serious: Yes (Hospitalization)
  Sender: FDA-Public Use
  Company Number: IT-PFIZER INC-2017420669

PATIENT
  Age: 48 Year
  Sex: Male

DRUGS (9)
  1. VENLAFAXINE HCL [Interacting]
     Active Substance: VENLAFAXINE HYDROCHLORIDE
     Indication: DEPRESSION
     Dosage: 1 DF, DAILY
     Route: 048
  2. ORAMORPH [Interacting]
     Active Substance: MORPHINE SULFATE
     Indication: PAIN
     Dosage: UNK, AS NEEDED
     Route: 048
  3. PERGASTID [Concomitant]
     Dosage: UNK, 3X/DAY
  4. GABAPENTIN. [Interacting]
     Active Substance: GABAPENTIN
     Indication: EPILEPSY
     Dosage: 1 DF, DAILY
     Route: 048
  5. METHADONE HCL [Interacting]
     Active Substance: METHADONE HYDROCHLORIDE
     Indication: PAIN
     Dosage: 40 MG, DAILY
     Route: 048
  6. EUTIROX [Concomitant]
     Active Substance: LEVOTHYROXINE SODIUM
     Dosage: UNK
  7. LAROXYL [Interacting]
     Active Substance: AMITRIPTYLINE HYDROCHLORIDE
     Indication: DEPRESSION
     Dosage: UNK, DAILY
     Route: 048
  8. TAVOR (LORAZEPAM) [Suspect]
     Active Substance: LORAZEPAM
     Indication: ANXIETY
     Dosage: UNK, DAILY
     Route: 048
  9. FENTANYL TRANSDERMAL SYSTEM [Interacting]
     Active Substance: FENTANYL
     Indication: PAIN
     Dosage: 1 DF, AS NEEDED
     Route: 003

REACTIONS (6)
  - Fracture [Unknown]
  - Wound [Unknown]
  - Somnolence [Unknown]
  - Fall [Unknown]
  - Drug interaction [Unknown]
  - Injury [Unknown]

NARRATIVE: CASE EVENT DATE: 20170602
